FAERS Safety Report 10756004 (Version 3)
Quarter: 2015Q1

REPORT INFORMATION
  Report Type: Spontaneous
  Country: US (occurrence: US)
  Receive Date: 20150202
  Receipt Date: 20150224
  Transmission Date: 20150721
  Serious: No
  Sender: FDA-Public Use
  Company Number: US-GILEAD-2015-0135077

PATIENT
  Age: 71 Year
  Sex: Male

DRUGS (4)
  1. TYVASO [Suspect]
     Active Substance: TREPROSTINIL
     Indication: PRODUCT USED FOR UNKNOWN INDICATION
     Dosage: UNK
     Route: 065
     Dates: end: 20150125
  2. LETAIRIS [Suspect]
     Active Substance: AMBRISENTAN
     Indication: PRODUCT USED FOR UNKNOWN INDICATION
     Dosage: 10 MG, QD
     Route: 065
     Dates: start: 20121111
  3. ADCIRCA [Concomitant]
     Active Substance: TADALAFIL
  4. VIAGRA [Concomitant]
     Active Substance: SILDENAFIL CITRATE

REACTIONS (7)
  - Nausea [Unknown]
  - Dyspnoea [Unknown]
  - Sinus disorder [Unknown]
  - Headache [Unknown]
  - Diarrhoea [Unknown]
  - Sinus congestion [Unknown]
  - Cough [Unknown]
